FAERS Safety Report 13697462 (Version 1)
Quarter: 2017Q2

REPORT INFORMATION
  Report Type: Spontaneous
  Country: US (occurrence: US)
  Receive Date: 20170628
  Receipt Date: 20170628
  Transmission Date: 20170830
  Serious: Yes (Death, Other)
  Sender: FDA-Public Use
  Company Number: US-JAZZ-2017-US-008080

PATIENT
  Age: 25 Year
  Sex: Male

DRUGS (1)
  1. DEFITELIO [Suspect]
     Active Substance: DEFIBROTIDE SODIUM
     Indication: PRODUCT USED FOR UNKNOWN INDICATION
     Dosage: 600MG
     Route: 041
     Dates: start: 201705, end: 201705

REACTIONS (1)
  - Death [Fatal]
